FAERS Safety Report 11794699 (Version 3)
Quarter: 2016Q1

REPORT INFORMATION
  Report Type: Report from Study
  Country: FR (occurrence: FR)
  Receive Date: 20151202
  Receipt Date: 20160122
  Transmission Date: 20160525
  Serious: Yes (Hospitalization, Other)
  Sender: FDA-Public Use
  Company Number: FR-ABBVIE-15P-056-1506355-00

PATIENT
  Age: 30 Year
  Sex: Female
  Weight: 48 kg

DRUGS (9)
  1. HUMIRA [Suspect]
     Active Substance: ADALIMUMAB
     Indication: CROHN^S DISEASE
     Dosage: BASELINE
     Route: 058
     Dates: start: 20070903, end: 20070903
  2. HUMIRA [Suspect]
     Active Substance: ADALIMUMAB
     Dosage: WEEK 2
     Route: 058
  3. IMODIUM [Concomitant]
     Active Substance: LOPERAMIDE HYDROCHLORIDE
     Indication: CROHN^S DISEASE
     Dosage: 6CP
     Dates: start: 200505
  4. SEROPRAM [Concomitant]
     Active Substance: CITALOPRAM HYDROBROMIDE
     Indication: DEPRESSION
     Dates: start: 201001
  5. HUMIRA [Suspect]
     Active Substance: ADALIMUMAB
     Route: 058
  6. ATARAX [Concomitant]
     Active Substance: HYDROXYZINE\HYDROXYZINE HYDROCHLORIDE
     Indication: DEPRESSION
     Dates: start: 20101207
  7. URSOLVAN [Concomitant]
     Active Substance: URSODIOL
     Indication: CHOLANGITIS SCLEROSING
     Dates: start: 201004
  8. HUMIRA [Suspect]
     Active Substance: ADALIMUMAB
     Route: 058
     Dates: start: 20090324
  9. METEOSPASMYL [Concomitant]
     Active Substance: ALVERINE CITRATE\DIMETHICONE
     Indication: ABDOMINAL DISTENSION
     Dosage: 6-2CP
     Dates: start: 200903

REACTIONS (1)
  - Colon dysplasia [Recovered/Resolved]

NARRATIVE: CASE EVENT DATE: 20150426
